FAERS Safety Report 4874720-9 (Version None)
Quarter: 2006Q1

REPORT INFORMATION
  Report Type: 
  Country: None (occurrence: None)
  Receive Date: 20060106
  Receipt Date: 20051005
  Transmission Date: 20060701
  Serious: Yes (Death, Hospitalization)
  Sender: FDA-Public Use
  Company Number: US-MERCK-0510USA04153

PATIENT
  Age: 77 Year
  Sex: Female
  Weight: 77 kg

DRUGS (1)
  1. VIOXX [Suspect]
     Indication: STRESS
     Route: 048
     Dates: end: 20020516

REACTIONS (3)
  - ARTERIOSCLEROSIS [None]
  - CHEST PAIN [None]
  - PARAESTHESIA [None]
